FAERS Safety Report 9416687 (Version 1)
Quarter: 2013Q3

REPORT INFORMATION
  Report Type: Not Available
  Country: JP (occurrence: JP)
  Receive Date: 20130724
  Receipt Date: 20130724
  Transmission Date: 20140515
  Serious: Yes (Hospitalization, Disabling)
  Sender: FDA-Public Use
  Company Number: JP-ASTELLAS-2013JP006739

PATIENT
  Age: 79 Year
  Sex: Female
  Weight: 52.1 kg

DRUGS (14)
  1. PROGRAF [Suspect]
     Indication: RHEUMATOID ARTHRITIS
     Dosage: 2.5 MG, UID/QD
     Route: 048
     Dates: start: 200909
  2. CYTOTEC [Concomitant]
     Dosage: 200 UG, BID
     Route: 048
     Dates: start: 20130514
  3. ONEALFA [Concomitant]
     Dosage: 0.5 UG, UID/QD
     Route: 048
     Dates: start: 20130514
  4. PREDNISOLONE [Concomitant]
     Dosage: 7.5 MG, UNKNOWN/D
     Route: 048
     Dates: start: 20130514
  5. SPIRIVA [Concomitant]
     Dosage: UNK
     Route: 055
     Dates: start: 20130514
  6. NEXIUM                             /01479302/ [Concomitant]
     Dosage: 20 MG, UID/QD
     Route: 048
     Dates: start: 20130514
  7. SPELEAR [Concomitant]
     Dosage: 400 MG, TID
     Route: 048
     Dates: start: 20130514
  8. MUCOSOLVAN [Concomitant]
     Dosage: 15 MG, TID
     Route: 048
     Dates: start: 20130514
  9. GASMOTIN [Concomitant]
     Dosage: 5 MG, TID
     Route: 048
     Dates: start: 20130514
  10. PL GRAN. [Concomitant]
     Dosage: 1 G, TID
     Route: 048
     Dates: start: 20130514
  11. LOXONIN [Concomitant]
     Dosage: 60 MG, BID
     Route: 048
     Dates: start: 20130514
  12. LENDORMIN [Concomitant]
     Dosage: 0.5 MG, UID/QD
     Route: 048
     Dates: start: 20130514
  13. NOVORAPID MIX [Concomitant]
     Dosage: 10 IU, UNKNOWN/D
     Route: 065
     Dates: start: 20130419
  14. GLUFAST [Concomitant]
     Dosage: 10 MG, UID/QD
     Route: 048
     Dates: start: 20130419

REACTIONS (2)
  - Thrombotic cerebral infarction [Recovered/Resolved with Sequelae]
  - Arteriosclerosis [Recovered/Resolved with Sequelae]
